FAERS Safety Report 8807408 (Version 3)
Quarter: 2013Q1

REPORT INFORMATION
  Report Type: Spontaneous
  Country: US (occurrence: US)
  Receive Date: 20120925
  Receipt Date: 20130131
  Transmission Date: 20140127
  Serious: Yes (Hospitalization, Other)
  Sender: FDA-Public Use
  Company Number: US-ELI_LILLY_AND_COMPANY-US201204007188

PATIENT
  Age: 80 None
  Sex: Female

DRUGS (21)
  1. FORTEO [Suspect]
     Indication: OSTEOPOROSIS
     Dosage: 20 UG, QD
     Dates: start: 201104
  2. FORTEO [Suspect]
     Dosage: 20 UG, QD
  3. FORTEO [Suspect]
     Dosage: 20 UG, QD
     Dates: start: 201204, end: 20120828
  4. FORTEO [Suspect]
     Dosage: 20 UG, QD
     Dates: start: 20120910
  5. CLINDAMYCIN [Concomitant]
  6. DILTIAZEM [Concomitant]
  7. IPRATROPIUM [Concomitant]
  8. LEVOFLOXACIN [Concomitant]
  9. METOPROLOL [Concomitant]
  10. ASPIRIN [Concomitant]
     Dosage: 325 MG, UNK
  11. B COMPLEX                          /00212701/ [Concomitant]
  12. CALCIUM [Concomitant]
  13. VITAMIN D [Concomitant]
  14. COQ10                                   /NEZ/ [Concomitant]
  15. CRANBERRY [Concomitant]
  16. LYSINE [Concomitant]
     Dosage: 1000 MG, UNK
  17. MAGNESIUM [Concomitant]
     Dosage: 250 MG, UNK
  18. MULTIVITAMIN [Concomitant]
     Dosage: UNK, QD
  19. NIACIN [Concomitant]
     Dosage: 250 MG, QD
  20. GLUCOSAMINE + CHONDROITIN [Concomitant]
  21. PREDNISONE [Concomitant]

REACTIONS (25)
  - Pneumonia [Unknown]
  - Urinary tract infection [Unknown]
  - Urinary tract infection [Unknown]
  - Rib fracture [Unknown]
  - Gastric ulcer [Unknown]
  - Atrial fibrillation [Unknown]
  - Stevens-Johnson syndrome [Unknown]
  - Hypoacusis [Unknown]
  - Tremor [Unknown]
  - Mobility decreased [Unknown]
  - Memory impairment [Unknown]
  - Injection site rash [Unknown]
  - Drug administered at inappropriate site [Unknown]
  - Medication error [Unknown]
  - Eating disorder [Unknown]
  - Fatigue [Unknown]
  - Dyspnoea [Unknown]
  - Gait disturbance [Unknown]
  - Pyrexia [Unknown]
  - White blood cell count decreased [Unknown]
  - Dermatitis allergic [Recovering/Resolving]
  - Weight decreased [Unknown]
  - Dermatitis contact [Unknown]
  - Cardiac disorder [Unknown]
  - Respiratory disorder [Unknown]
